FAERS Safety Report 9846418 (Version 1)
Quarter: 2014Q1

REPORT INFORMATION
  Report Type: Spontaneous
  Country: US (occurrence: None)
  Receive Date: 20140122
  Receipt Date: 20140122
  Transmission Date: 20141002
  Serious: Yes (Other)
  Sender: FDA-Public Use
  Company Number: US-000909

PATIENT
  Age: 50 Year
  Sex: Female

DRUGS (3)
  1. GATTEX [Suspect]
     Indication: SHORT-BOWEL SYNDROME
     Dosage: DF
     Route: 058
     Dates: start: 20131230
  2. AMITRIPTYLINE [Concomitant]
  3. AMBIEN [Concomitant]

REACTIONS (4)
  - Headache [None]
  - Nausea [None]
  - Vomiting [None]
  - Loss of consciousness [None]
